FAERS Safety Report 5788264-3 (Version None)
Quarter: 2008Q2

REPORT INFORMATION
  Report Type: 
  Country: None (occurrence: None)
  Receive Date: 20080623
  Receipt Date: 20080618
  Transmission Date: 20081010
  Serious: Yes (Other)
  Sender: FDA-Public Use
  Company Number: CHPA2008US10178

PATIENT
  Age: 81 Year
  Sex: Female
  Weight: 70.3 kg

DRUGS (1)
  1. MAALOX ANTACID/ANTIGAS RS LIQ SMTHCHERRY [Suspect]
     Indication: GASTROOESOPHAGEAL REFLUX DISEASE
     Dosage: OFF AND ON FOR A YEAR, ORAL
     Route: 048

REACTIONS (3)
  - ABDOMINAL PAIN UPPER [None]
  - COLON OPERATION [None]
  - GASTRIC OPERATION [None]
